FAERS Safety Report 24025238 (Version 2)
Quarter: 2024Q3

REPORT INFORMATION
  Report Type: Report from Study
  Country: CN (occurrence: CN)
  Receive Date: 20240628
  Receipt Date: 20240710
  Transmission Date: 20241017
  Serious: No
  Sender: ROCHE
  Company Number: CN-ROCHE-3276979

PATIENT
  Age: 40 Year
  Sex: Male
  Weight: 70.0 kg

DRUGS (1)
  1. ALECENSA [Suspect]
     Active Substance: ALECTINIB HYDROCHLORIDE
     Indication: Lung neoplasm malignant
     Dosage: CAPSULES, 150 MG * 224 CAPSULES
     Route: 048
     Dates: start: 20230120

REACTIONS (12)
  - Constipation [Recovering/Resolving]
  - Lymphadenopathy [Recovered/Resolved]
  - Neutrophil count increased [Not Recovered/Not Resolved]
  - Lymphocyte count decreased [Recovered/Resolved]
  - Epistaxis [Recovering/Resolving]
  - Back pain [Not Recovered/Not Resolved]
  - Dermatitis allergic [Recovering/Resolving]
  - Hilar lymphadenopathy [Not Recovered/Not Resolved]
  - Cytokeratin 19 increased [Not Recovered/Not Resolved]
  - Blood bilirubin increased [Not Recovered/Not Resolved]
  - Adrenal neoplasm [Not Recovered/Not Resolved]
  - Nasopharyngitis [Recovering/Resolving]

NARRATIVE: CASE EVENT DATE: 20230127
